FAERS Safety Report 6663044-5 (Version None)
Quarter: 2010Q2

REPORT INFORMATION
  Report Type: 
  Country: None (occurrence: None)
  Receive Date: 20100401
  Receipt Date: 20100318
  Transmission Date: 20101027
  Serious: Yes (Hospitalization, Other)
  Sender: FDA-Public Use
  Company Number: US-ELI_LILLY_AND_COMPANY-US201003006526

PATIENT
  Sex: Male

DRUGS (8)
  1. FORTEO [Suspect]
     Indication: OSTEOPOROSIS
     Dosage: 20 UG, DAILY (1/D)
     Dates: start: 20091202, end: 20100104
  2. PREDNISONE [Concomitant]
     Dosage: 10 MG, DAILY (1/D)
  3. MUCINEX [Concomitant]
     Dosage: 600 MG, 2/D
  4. SYMBICORT [Concomitant]
     Dosage: UNK D/F, 2/D
     Route: 055
  5. PROPOXYPHENE HCL [Concomitant]
     Indication: PAIN
  6. IPRATROPIUM BROMIDE [Concomitant]
     Dosage: 0.02 %, UNKNOWN
  7. ALBUTEROL SULFATE AUTOHALER [Concomitant]
     Dosage: 2.5 MG, UNKNOWN
  8. OXYGEN [Concomitant]

REACTIONS (3)
  - FALL [None]
  - HEART RATE IRREGULAR [None]
  - LOSS OF CONSCIOUSNESS [None]
